FAERS Safety Report 4347257-3 (Version None)
Quarter: 2004Q1

REPORT INFORMATION
  Report Type: 
  Country: None (occurrence: None)
  Receive Date: 20040325
  Receipt Date: 20040128
  Transmission Date: 20041129
  Serious: No
  Sender: FDA-Public Use
  Company Number: USA040157931

PATIENT
  Age: 69 Year
  Sex: Female

DRUGS (5)
  1. FORTEO [Suspect]
     Indication: OSTEOPOROSIS
     Dates: start: 20040125
  2. BENICAR (BENICAR) [Concomitant]
  3. LIPITOR [Concomitant]
  4. ZANTAC [Concomitant]
  5. VITAMINS NOS [Concomitant]

REACTIONS (9)
  - BACK PAIN [None]
  - BLOOD PRESSURE INCREASED [None]
  - CHILLS [None]
  - FEELING COLD [None]
  - HEADACHE [None]
  - HEART RATE INCREASED [None]
  - INFLUENZA [None]
  - INJECTION SITE PAIN [None]
  - NECK PAIN [None]
